FAERS Safety Report 6148728-X (Version None)
Quarter: 2009Q2

REPORT INFORMATION
  Report Type: 
  Country: None (occurrence: None)
  Receive Date: 20090408
  Receipt Date: 20090326
  Transmission Date: 20091009
  Serious: Yes (Hospitalization)
  Sender: FDA-Public Use
  Company Number: JP-ABBOTT-09P-087-0566793-00

PATIENT
  Age: 74 Year
  Sex: Male

DRUGS (23)
  1. LEUPLIN SR FOR INJECTION 11.25 MG [Suspect]
     Indication: PROSTATE CANCER STAGE II
     Route: 058
     Dates: start: 20061213
  2. BLOPRESS [Concomitant]
     Indication: HYPERTENSION
     Route: 048
  3. BLOPRESS [Concomitant]
     Route: 048
  4. TAKEPRON [Concomitant]
     Indication: GASTRITIS
     Route: 048
  5. CASODEX [Concomitant]
     Indication: PROSTATE CANCER STAGE II
     Route: 048
     Dates: start: 20061023
  6. HARNAL D [Concomitant]
     Indication: BENIGN PROSTATIC HYPERPLASIA
     Route: 048
  7. GASMOTIN [Concomitant]
     Indication: GASTRITIS
     Route: 048
  8. CYANOCOBALAMIN [Concomitant]
     Indication: NEUROPATHY PERIPHERAL
     Route: 048
  9. MEVALOTIN [Concomitant]
     Indication: HYPERLIPIDAEMIA
     Route: 048
  10. AMOBAN [Concomitant]
     Indication: INSOMNIA
     Route: 048
  11. AMARYL [Concomitant]
     Indication: DIABETES MELLITUS
     Route: 048
  12. ASPIRIN [Concomitant]
     Indication: ANGINA PECTORIS
     Route: 048
  13. PURSENNID [Concomitant]
     Indication: CONSTIPATION
     Route: 048
  14. PURSENNID [Concomitant]
     Route: 048
  15. AMLODIPINE [Concomitant]
     Indication: HYPERTENSION
     Route: 048
  16. ALMARL [Concomitant]
     Indication: ANGINA PECTORIS
     Route: 048
  17. NEUROTROPIN [Concomitant]
     Indication: BACK PAIN
     Route: 048
  18. ALLOPURINOL [Concomitant]
     Indication: GOUT
     Route: 048
  19. NORVASC [Concomitant]
     Indication: HYPERTENSION
     Route: 048
  20. PLAVIX [Concomitant]
     Indication: HYPERTENSION
     Route: 048
  21. SALOBEL [Concomitant]
     Indication: HYPERURICAEMIA
     Route: 048
  22. MAGNESIUM OXIDE [Concomitant]
     Indication: CONSTIPATION
     Route: 048
  23. ALOSENN [Concomitant]
     Indication: CONSTIPATION
     Route: 048

REACTIONS (2)
  - DEHYDRATION [None]
  - PNEUMONIA [None]
